FAERS Safety Report 5877835-1 (Version None)
Quarter: 2008Q3

REPORT INFORMATION
  Report Type: 
  Country: None (occurrence: None)
  Receive Date: 20080908
  Receipt Date: 20080908
  Transmission Date: 20090109
  Serious: Yes (Hospitalization)
  Sender: FDA-Public Use
  Company Number: None

PATIENT
  Age: 53 Year
  Sex: Female
  Weight: 48.2 kg

DRUGS (18)
  1. CARBOPLATIN [Suspect]
     Indication: BREAST CANCER METASTATIC
     Dosage: 154 MG ONCE WEEKLY X3 IV
     Route: 042
     Dates: start: 20080505, end: 20080815
  2. ABRAXANE [Suspect]
     Dosage: 80MG/M2 ONCE WEEKLY X3 IV
     Route: 042
     Dates: start: 20080505, end: 20080815
  3. EFFEXOR [Concomitant]
  4. LEXAPRO [Concomitant]
  5. XANAX [Concomitant]
  6. FENTANYL [Concomitant]
  7. TYLENOL (CAPLET) [Concomitant]
  8. IBUPROFEN [Concomitant]
  9. NEXIUM [Concomitant]
  10. ZOFRAN [Concomitant]
  11. DECADRON SRC [Concomitant]
  12. NEUPOGEN [Concomitant]
  13. MULTI-VITAMIN [Concomitant]
  14. BENADRYL [Concomitant]
  15. OPANA [Concomitant]
  16. RITALIN [Concomitant]
  17. COLACE [Concomitant]
  18. IRON SUPPLEMENT [Concomitant]

REACTIONS (9)
  - ASTHENIA [None]
  - BLOOD PRESSURE DECREASED [None]
  - BREAST CANCER METASTATIC [None]
  - DEHYDRATION [None]
  - HEART RATE INCREASED [None]
  - HYPONATRAEMIA [None]
  - METASTASES TO CHEST WALL [None]
  - WOUND INFECTION [None]
  - WOUND SECRETION [None]
